FAERS Safety Report 20489096 (Version 1)
Quarter: 2022Q1

REPORT INFORMATION
  Report Type: Spontaneous
  Country: US (occurrence: None)
  Receive Date: 20220217
  Receipt Date: 20220217
  Transmission Date: 20220423
  Serious: No
  Sender: FDA-Public Use
  Company Number: None

PATIENT
  Age: 76 Year
  Sex: Male
  Weight: 239 kg

DRUGS (1)
  1. APIXABAN [Suspect]
     Active Substance: APIXABAN
     Indication: Atrial fibrillation
     Dates: start: 20211019

REACTIONS (10)
  - Asthenia [None]
  - Decreased appetite [None]
  - Cough [None]
  - Influenza like illness [None]
  - Abdominal pain upper [None]
  - Haematemesis [None]
  - Melaena [None]
  - Oesophageal ulcer [None]
  - Haemoglobin decreased [None]
  - Gastric haemorrhage [None]

NARRATIVE: CASE EVENT DATE: 20220202
